FAERS Safety Report 12842707 (Version 1)
Quarter: 2016Q4

REPORT INFORMATION
  Report Type: Spontaneous
  Country: US (occurrence: US)
  Receive Date: 20161013
  Receipt Date: 20161013
  Transmission Date: 20170207
  Serious: Yes (Other)
  Sender: FDA-Public Use
  Company Number: US-PFIZER INC-2016465026

PATIENT
  Sex: Female

DRUGS (1)
  1. IBRANCE [Suspect]
     Active Substance: PALBOCICLIB
     Indication: BENIGN ETHNIC NEUTROPENIA
     Dosage: UNK

REACTIONS (2)
  - Product use issue [Unknown]
  - Neutrophil count decreased [Unknown]
